FAERS Safety Report 16046908 (Version 1)
Quarter: 2019Q1

REPORT INFORMATION
  Report Type: Spontaneous
  Country: US (occurrence: US)
  Receive Date: 20190207
  Receipt Date: 20190207
  Transmission Date: 20190418
  Serious: Yes (Hospitalization)
  Sender: FDA-Public Use
  Company Number: None

PATIENT
  Age: 55 Year
  Sex: Female
  Weight: 82.5 kg

DRUGS (13)
  1. IDELALISIB 100 MG PO BID (GILEAD) [Suspect]
     Active Substance: IDELALISIB
     Indication: BONE MARROW TRANSPLANT
     Route: 048
     Dates: start: 20181105, end: 20181128
  2. IMODIUM [Concomitant]
     Active Substance: LOPERAMIDE HYDROCHLORIDE
  3. ZYPREXA [Concomitant]
     Active Substance: OLANZAPINE
  4. PROZAC [Concomitant]
     Active Substance: FLUOXETINE HYDROCHLORIDE
  5. SYNTHROID [Concomitant]
     Active Substance: LEVOTHYROXINE SODIUM
  6. CYCLIC TPN [Concomitant]
  7. BENTYL [Concomitant]
     Active Substance: DICYCLOMINE HYDROCHLORIDE
  8. DILAUDID [Concomitant]
     Active Substance: HYDROMORPHONE HYDROCHLORIDE
  9. SANDOSTATIN [Concomitant]
     Active Substance: OCTREOTIDE ACETATE
  10. PEPCID [Concomitant]
     Active Substance: FAMOTIDINE
  11. TACROLIUM [Concomitant]
  12. CALCITOL [Concomitant]
  13. ATIVAN [Concomitant]
     Active Substance: LORAZEPAM

REACTIONS (2)
  - Cytomegalovirus colitis [None]
  - Graft versus host disease [None]

NARRATIVE: CASE EVENT DATE: 20181130
